FAERS Safety Report 6640658-X (Version None)
Quarter: 2010Q1

REPORT INFORMATION
  Report Type: 
  Country: None (occurrence: None)
  Receive Date: 20100318
  Receipt Date: 20100308
  Transmission Date: 20100710
  Serious: Yes (Other)
  Sender: FDA-Public Use
  Company Number: JP-ROCHE-689930

PATIENT
  Sex: Female

DRUGS (1)
  1. HERCEPTIN [Suspect]
     Indication: BREAST CANCER METASTATIC
     Route: 041
     Dates: start: 20091001

REACTIONS (1)
  - DEAFNESS [None]
